FAERS Safety Report 20944776 (Version 1)
Quarter: 2022Q2

REPORT INFORMATION
  Report Type: Spontaneous
  Country: US (occurrence: US)
  Receive Date: 20220610
  Receipt Date: 20220610
  Transmission Date: 20220721
  Serious: Yes (Hospitalization)
  Sender: FDA-Public Use
  Company Number: US-BAYER-2022A080350

PATIENT
  Age: 71 Year
  Sex: Male

DRUGS (3)
  1. ASPIRIN [Suspect]
     Active Substance: ASPIRIN
  2. HEPARIN [Suspect]
     Active Substance: HEPARIN SODIUM
  3. ENOXAPARIN [Suspect]
     Active Substance: ENOXAPARIN

REACTIONS (7)
  - Compartment syndrome [Recovered/Resolved with Sequelae]
  - Haematoma [None]
  - Muscle haemorrhage [None]
  - Blood loss anaemia [None]
  - Labelled drug-drug interaction medication error [None]
  - Venous haemorrhage [None]
  - Post procedural haemorrhage [None]
